FAERS Safety Report 14184430 (Version 5)
Quarter: 2018Q2

REPORT INFORMATION
  Report Type: Spontaneous
  Country: JP (occurrence: JP)
  Receive Date: 20171113
  Receipt Date: 20180412
  Transmission Date: 20180711
  Serious: Yes (Death, Hospitalization)
  Sender: FDA-Public Use
  Company Number: JP-EISAI MEDICAL RESEARCH-EC-2017-032975

PATIENT
  Age: 69 Year
  Sex: Female

DRUGS (18)
  1. FYCOMPA [Suspect]
     Active Substance: PERAMPANEL
     Indication: EPILEPSY
     Route: 050
     Dates: start: 20171026, end: 20171028
  2. ALEVIATIN [Interacting]
     Active Substance: PHENYTOIN SODIUM
     Indication: STATUS EPILEPTICUS
     Route: 042
     Dates: start: 20170830, end: 20170830
  3. SELENICA-R [Concomitant]
     Active Substance: VALPROATE SODIUM
     Indication: EPILEPSY
     Route: 050
     Dates: start: 20170830
  4. ALEVIATIN [Interacting]
     Active Substance: PHENYTOIN SODIUM
     Indication: SEIZURE
     Route: 042
     Dates: start: 20171105, end: 20171127
  5. E KEPPRA [Concomitant]
     Active Substance: LEVETIRACETAM
     Route: 050
     Dates: start: 20171105, end: 20171218
  6. FERROMIA [Concomitant]
     Active Substance: SODIUM FERROUS CITRATE
     Indication: ANAEMIA
     Route: 048
     Dates: start: 20171002, end: 20171106
  7. ALEVIATIN [Interacting]
     Active Substance: PHENYTOIN SODIUM
     Indication: EPILEPSY
     Route: 042
     Dates: start: 20171026, end: 20171029
  8. E KEPPRA [Concomitant]
     Active Substance: LEVETIRACETAM
     Indication: SEIZURE
     Route: 050
     Dates: start: 20171030, end: 20171104
  9. VALPROATE NA [Concomitant]
     Active Substance: VALPROATE SODIUM
     Indication: SEIZURE
     Route: 050
     Dates: start: 20171027, end: 20180110
  10. FYCOMPA [Interacting]
     Active Substance: PERAMPANEL
     Indication: STATUS EPILEPTICUS
     Route: 050
     Dates: start: 20171128, end: 20171130
  11. BFLUID [Concomitant]
     Active Substance: AMINO ACIDS\DEXTROSE\ELECTROLYTES NOS\VITAMINS
     Indication: VASCULAR ACCESS PLACEMENT
     Route: 041
     Dates: start: 20171025, end: 20171104
  12. SOLDEM [Concomitant]
     Active Substance: DEXTROSE\POTASSIUM CHLORIDE\SODIUM CHLORIDE\SODIUM LACTATE
     Indication: VASCULAR ACCESS PLACEMENT
     Route: 041
     Dates: start: 20171025, end: 20171029
  13. FYCOMPA [Interacting]
     Active Substance: PERAMPANEL
     Route: 050
     Dates: start: 20171213, end: 20180105
  14. EXCEGRAN [Concomitant]
     Active Substance: ZONISAMIDE
     Indication: EPILEPSY
     Route: 050
     Dates: start: 20170830
  15. FYCOMPA [Interacting]
     Active Substance: PERAMPANEL
     Route: 050
     Dates: start: 20171201, end: 20171212
  16. E KEPPRA [Concomitant]
     Active Substance: LEVETIRACETAM
     Indication: EPILEPSY
     Route: 050
     Dates: start: 20170830, end: 2017
  17. E KEPPRA [Concomitant]
     Active Substance: LEVETIRACETAM
     Route: 050
     Dates: start: 20171219, end: 20180110
  18. SYMMETREL [Concomitant]
     Active Substance: AMANTADINE HYDROCHLORIDE
     Indication: ALTERED STATE OF CONSCIOUSNESS
     Route: 048
     Dates: start: 20171020, end: 20171101

REACTIONS (5)
  - Stomatitis [Recovering/Resolving]
  - Hyperglycaemia [Fatal]
  - Drug interaction [Recovering/Resolving]
  - Cardiac failure [Fatal]
  - Cystitis [Recovering/Resolving]

NARRATIVE: CASE EVENT DATE: 20171029
